FAERS Safety Report 15923475 (Version 2)
Quarter: 2019Q1

REPORT INFORMATION
  Report Type: Report from Study
  Country: DE (occurrence: DE)
  Receive Date: 20190206
  Receipt Date: 20190314
  Transmission Date: 20190417
  Serious: Yes (Death)
  Sender: FDA-Public Use
  Company Number: DE-ACCORD-105967

PATIENT
  Age: 69 Year
  Sex: Female
  Weight: 56 kg

DRUGS (6)
  1. FENISTIL [Concomitant]
     Active Substance: DIMETHINDENE
     Indication: HYPERSENSITIVITY
     Dosage: BEFORE ADMINISTRATION OF AVASTIN
     Route: 042
     Dates: start: 20160310
  2. PREGABADOR [Concomitant]
     Active Substance: PREGABALIN
     Indication: NEURALGIA
     Route: 048
     Dates: start: 20160310
  3. CAPECITABINE. [Suspect]
     Active Substance: CAPECITABINE
     Indication: BREAST CANCER
     Dosage: ALSO RECEIVED FROM 10-JUN-2016 TO 23-JUN-2016,01-JUL-2016 TO 14-JUL-2016,14-JUL-2016 TO 14-JUL-2016
     Route: 048
     Dates: start: 20160311, end: 20160324
  4. SOLU DECORTIN [Concomitant]
     Active Substance: PREDNISOLONE SODIUM SUCCINATE
     Indication: HYPERSENSITIVITY
     Dosage: BEFORE ADMINISTRATION OF AVASTIN
     Route: 042
     Dates: start: 20160310
  5. BEVACIZUMAB. [Suspect]
     Active Substance: BEVACIZUMAB
     Indication: BREAST CANCER
     Dosage: ALSO RECEIVED SOLUTION FOR INFUSION (825 MG) FROM 14-JUL-2016 TO 14-JUL-2016 EVERY 3 WEEK
     Route: 042
     Dates: start: 20160310, end: 20160714
  6. RANITIDINE. [Concomitant]
     Active Substance: RANITIDINE
     Indication: PROPHYLAXIS
     Dosage: BEFORE ADMINISTRATION OF AVASTIN
     Route: 042
     Dates: start: 20160310

REACTIONS (2)
  - General physical health deterioration [Fatal]
  - Apathy [Fatal]

NARRATIVE: CASE EVENT DATE: 20160720
